FAERS Safety Report 7798420-0 (Version None)
Quarter: 2011Q4

REPORT INFORMATION
  Report Type: 
  Country: None (occurrence: None)
  Receive Date: 20111005
  Receipt Date: 20110202
  Transmission Date: 20120403
  Serious: No
  Sender: FDA-Public Use
  Company Number: US-BAYER-2011-011787

PATIENT
  Age: 59 Year
  Sex: Male

DRUGS (2)
  1. LEVITRA [Suspect]
     Indication: ERECTILE DYSFUNCTION
     Dosage: 20 UNK, UNK
  2. TESTOSTERONE [Concomitant]

REACTIONS (4)
  - FLUSHING [None]
  - HEADACHE [None]
  - ABNORMAL SENSATION IN EYE [None]
  - DYSPEPSIA [None]
